FAERS Safety Report 6409986-7 (Version None)
Quarter: 2009Q4

REPORT INFORMATION
  Report Type: 
  Country: None (occurrence: None)
  Receive Date: 20091022
  Receipt Date: 20091020
  Transmission Date: 20100525
  Serious: Yes (Death)
  Sender: FDA-Public Use
  Company Number: DE-TEVA-212940USA

PATIENT
  Sex: Female

DRUGS (3)
  1. NALTREXONE HYDROCHLORIDE [Suspect]
  2. VENLAFAXINE [Suspect]
     Indication: PAIN
  3. FENTANYL-100 [Suspect]
     Indication: PAIN
     Route: 062

REACTIONS (3)
  - DRUG ABUSE [None]
  - DRUG TOXICITY [None]
  - NAUSEA [None]
